FAERS Safety Report 25739920 (Version 1)
Quarter: 2025Q3

REPORT INFORMATION
  Report Type: Spontaneous
  Country: EU (occurrence: EU)
  Receive Date: 20250829
  Receipt Date: 20250829
  Transmission Date: 20251020
  Serious: Yes (Other)
  Sender: MYLAN
  Company Number: EU-MYLANLABS-2025M1070920

PATIENT
  Sex: Male

DRUGS (4)
  1. XALATAN [Suspect]
     Active Substance: LATANOPROST
     Indication: Product used for unknown indication
  2. XALATAN [Suspect]
     Active Substance: LATANOPROST
     Route: 065
  3. XALATAN [Suspect]
     Active Substance: LATANOPROST
     Route: 065
  4. XALATAN [Suspect]
     Active Substance: LATANOPROST

REACTIONS (2)
  - Condition aggravated [Unknown]
  - Apnoea [Unknown]
